FAERS Safety Report 6149915-7 (Version None)
Quarter: 2009Q2

REPORT INFORMATION
  Report Type: 
  Country: None (occurrence: None)
  Receive Date: 20090407
  Receipt Date: 20090402
  Transmission Date: 20091009
  Serious: Yes (Other)
  Sender: FDA-Public Use
  Company Number: A0776821A

PATIENT
  Sex: Female

DRUGS (1)
  1. METHYLCELLULOSE CAPLET (METHYLCELLULOSE) [Suspect]
     Dosage: ORAL
     Route: 048

REACTIONS (3)
  - CARDIAC FAILURE CONGESTIVE [None]
  - ELECTROLYTE IMBALANCE [None]
  - POLYDIPSIA [None]
